FAERS Safety Report 20832423 (Version 1)
Quarter: 2022Q2

REPORT INFORMATION
  Report Type: Spontaneous
  Country: DE (occurrence: DE)
  Receive Date: 20220516
  Receipt Date: 20220516
  Transmission Date: 20220720
  Serious: Yes (Other)
  Sender: FDA-Public Use
  Company Number: DE-NOVARTISPH-NVSC2022DE107595

PATIENT
  Sex: Male
  Weight: 68 kg

DRUGS (9)
  1. VINCRISTINE [Suspect]
     Active Substance: VINCRISTINE
     Indication: Diffuse large B-cell lymphoma
     Dosage: UNK (1ST LINE, R CHOP, 4 CYCLES)
     Route: 065
     Dates: start: 201608, end: 201609
  2. GEMCITABINE [Suspect]
     Active Substance: GEMCITABINE
     Indication: Diffuse large B-cell lymphoma
     Dosage: UNK (2ND LINE, R-GDP, 4 CYCLES)
     Route: 065
     Dates: start: 201811, end: 201902
  3. RITUXIMAB [Suspect]
     Active Substance: RITUXIMAB
     Indication: Diffuse large B-cell lymphoma
     Dosage: UNK (1ST LINE, R-CHOP, 4 CYCLES)
     Route: 065
     Dates: start: 201608, end: 201609
  4. RITUXIMAB [Suspect]
     Active Substance: RITUXIMAB
     Dosage: UNK (2ND LINE, R-GDP, 4 CYCLES)
     Route: 065
     Dates: start: 201811, end: 201902
  5. CISPLATIN [Suspect]
     Active Substance: CISPLATIN
     Indication: Diffuse large B-cell lymphoma
     Dosage: UNK 92ND LINE, R-GDP, 4 CYCLES)
     Route: 065
     Dates: start: 201811, end: 201902
  6. DEXAMETHASONE [Suspect]
     Active Substance: DEXAMETHASONE
     Indication: Diffuse large B-cell lymphoma
     Dosage: UNK (2ND LINE, R-GDP, 4 CYCLES)
     Route: 065
     Dates: start: 201811, end: 201902
  7. PREDNISONE [Suspect]
     Active Substance: PREDNISONE
     Indication: Diffuse large B-cell lymphoma
     Dosage: UNK (1ST LINE, R-CHOP, 4 CYCLES)
     Route: 065
     Dates: start: 201608, end: 201609
  8. CYCLOPHOSPHAMIDE [Suspect]
     Active Substance: CYCLOPHOSPHAMIDE
     Indication: Diffuse large B-cell lymphoma
     Dosage: UNK (1ST LINE, R-CHOP, 4 CYCLES)
     Route: 065
     Dates: start: 201608, end: 201609
  9. DOXORUBICIN [Suspect]
     Active Substance: DOXORUBICIN
     Indication: Diffuse large B-cell lymphoma
     Dosage: UNK (1ST LINE, R-CHOP, 4 CYCLES)
     Route: 065
     Dates: start: 201608, end: 201609

REACTIONS (3)
  - Cytokine release syndrome [Unknown]
  - Neuropathy peripheral [Unknown]
  - Abdominal pain [Unknown]
